FAERS Safety Report 17974067 (Version 1)
Quarter: 2020Q3

REPORT INFORMATION
  Report Type: Spontaneous
  Country: US (occurrence: US)
  Receive Date: 20200701
  Receipt Date: 20200701
  Transmission Date: 20201103
  Serious: Yes (Other)
  Sender: FDA-Public Use
  Company Number: None

PATIENT
  Age: 56 Year
  Sex: Female
  Weight: 68.04 kg

DRUGS (8)
  1. APPLE CIDER VINEGAR PILLS [Concomitant]
  2. MULTI VITAMIN [Concomitant]
     Active Substance: VITAMINS
  3. NP THYROID [Suspect]
     Active Substance: LEVOTHYROXINE\LIOTHYRONINE
     Indication: HYPOTHYROIDISM
     Dosage: ?          QUANTITY:30 DF DOSAGE FORM;?
     Route: 048
     Dates: start: 2017, end: 2018
  4. VITAMIN C [Concomitant]
     Active Substance: ASCORBIC ACID
  5. ZOLOFT [Concomitant]
     Active Substance: SERTRALINE HYDROCHLORIDE
  6. VITAMIN B12 [Concomitant]
     Active Substance: CYANOCOBALAMIN
  7. FLOVENT HFA [Concomitant]
     Active Substance: FLUTICASONE PROPIONATE
  8. LEVOTHYROXINE. [Concomitant]
     Active Substance: LEVOTHYROXINE

REACTIONS (12)
  - Palpitations [None]
  - Cardiac flutter [None]
  - Dyspnoea [None]
  - Sleep terror [None]
  - Heart rate increased [None]
  - Product measured potency issue [None]
  - Paraesthesia [None]
  - Abdominal discomfort [None]
  - Hypertension [None]
  - Anxiety [None]
  - Panic attack [None]
  - Insomnia [None]

NARRATIVE: CASE EVENT DATE: 20200329
